FAERS Safety Report 4962422-X (Version None)
Quarter: 2006Q2

REPORT INFORMATION
  Report Type: 
  Country: None (occurrence: None)
  Receive Date: 20060403
  Receipt Date: 20060403
  Transmission Date: 20061013
  Serious: Yes (Hospitalization)
  Sender: FDA-Public Use
  Company Number: None

PATIENT
  Age: 63 Year
  Sex: Female

DRUGS (9)
  1. GEMZAR [Suspect]
     Indication: METASTASES TO LIVER
     Dosage: 12540 ONCE DAILY IV BOLUS
     Route: 040
     Dates: start: 20060101, end: 20060301
  2. GEMZAR [Suspect]
     Indication: PANCREATIC CARCINOMA METASTATIC
     Dosage: 12540 ONCE DAILY IV BOLUS
     Route: 040
     Dates: start: 20060101, end: 20060301
  3. TAXOTERE [Suspect]
     Dosage: 50 ONCE DAILY IV BOLUS
     Route: 042
     Dates: start: 20060101, end: 20060301
  4. XELODA [Concomitant]
  5. GLIPIZIDE [Concomitant]
  6. PREVACID [Concomitant]
  7. LOVENOX [Concomitant]
  8. XANAX [Concomitant]
  9. FENTANYL [Concomitant]

REACTIONS (4)
  - ABDOMINAL PAIN [None]
  - NAUSEA [None]
  - OBSTRUCTION [None]
  - VOMITING [None]
